FAERS Safety Report 6067201-0 (Version None)
Quarter: 2009Q1

REPORT INFORMATION
  Report Type: 
  Country: None (occurrence: None)
  Receive Date: 20090205
  Receipt Date: 20090127
  Transmission Date: 20090719
  Serious: Yes (Hospitalization)
  Sender: FDA-Public Use
  Company Number: PHHY2009FR03530

PATIENT
  Sex: Female

DRUGS (3)
  1. AREDIA [Suspect]
     Indication: SCIATICA
     Dosage: 90 MG, ONCE/SINGLE
     Dates: start: 20081029
  2. TOPALGIC [Suspect]
     Indication: SCIATICA
     Dosage: 600 MG, QD
     Route: 042
     Dates: start: 20081029, end: 20081030
  3. TOPALGIC [Suspect]
     Dosage: 150 MG, BID
     Dates: start: 20081031, end: 20081104

REACTIONS (2)
  - LIPASE INCREASED [None]
  - PANCREATITIS ACUTE [None]
